FAERS Safety Report 7090672-8 (Version None)
Quarter: 2010Q4

REPORT INFORMATION
  Report Type: 
  Country: None (occurrence: None)
  Receive Date: 20101109
  Receipt Date: 20081009
  Transmission Date: 20110411
  Serious: No
  Sender: FDA-Public Use
  Company Number: US-KINGPHARMUSA00001-K200801186

PATIENT
  Sex: Female
  Weight: 54.422 kg

DRUGS (10)
  1. EPIPEN JR. [Suspect]
     Dosage: .15 MG, SINGLE
     Dates: start: 20081009, end: 20081009
  2. PREDNISONE [Concomitant]
     Indication: SYSTEMIC LUPUS ERYTHEMATOSUS
     Dosage: 10 MG, UNK
  3. CELLCEPT [Concomitant]
     Indication: SYSTEMIC LUPUS ERYTHEMATOSUS
     Dosage: 1000 MG, UNK
  4. PROGRAF [Concomitant]
     Indication: SYSTEMIC LUPUS ERYTHEMATOSUS
     Dosage: 6 MG, QD
  5. AVALIDE [Concomitant]
     Dosage: 150/12.5, BID
  6. LIPITOR [Concomitant]
     Indication: BLOOD CHOLESTEROL
     Dosage: 10 MG, UNK
  7. PROTONIX [Concomitant]
     Indication: GASTROOESOPHAGEAL REFLUX DISEASE
     Dosage: 40 MG, BID
  8. CALCIUM [Concomitant]
     Indication: OSTEOPOROSIS
     Dosage: 1500 MG, QD
  9. VITAMIN A [Concomitant]
     Indication: OSTEOPOROSIS
     Dosage: 50000 IU, QW
  10. TYLENOL (CAPLET) [Concomitant]
     Indication: PAIN
     Dosage: 4 TABS, PRN

REACTIONS (7)
  - ACCIDENTAL EXPOSURE [None]
  - EXPIRED DRUG ADMINISTERED [None]
  - HEART RATE INCREASED [None]
  - INJECTION SITE ANAESTHESIA [None]
  - INJECTION SITE HAEMATOMA [None]
  - INJECTION SITE PALLOR [None]
  - PALPITATIONS [None]
